FAERS Safety Report 6264989-0 (Version None)
Quarter: 2009Q3

REPORT INFORMATION
  Report Type: 
  Country: None (occurrence: None)
  Receive Date: 20090709
  Receipt Date: 20090709
  Transmission Date: 20100115
  Serious: No
  Sender: FDA-Public Use
  Company Number: None

PATIENT
  Age: 12 Year
  Sex: Male

DRUGS (1)
  1. BUPROPION HCL XL [Suspect]
     Dosage: BUPROPION XL 150MG ORAL
     Route: 048
     Dates: start: 20090701, end: 20090707

REACTIONS (4)
  - ANXIETY [None]
  - DEPRESSION [None]
  - OBSESSIVE-COMPULSIVE DISORDER [None]
  - PRODUCT SUBSTITUTION ISSUE [None]
